FAERS Safety Report 6189922-1 (Version None)
Quarter: 2009Q2

REPORT INFORMATION
  Report Type: 
  Country: None (occurrence: None)
  Receive Date: 20090514
  Receipt Date: 20070315
  Transmission Date: 20091009
  Serious: Yes (Hospitalization, Disabling, Other)
  Sender: FDA-Public Use
  Company Number: US-ASTRAZENECA-2006UW23582

PATIENT
  Age: 13611 Day
  Sex: Female
  Weight: 110.7 kg

DRUGS (23)
  1. SEROQUEL [Suspect]
     Dosage: 25-400 MG DAILY
     Route: 048
     Dates: start: 20030507
  2. AMBIEN [Concomitant]
     Indication: INSOMNIA
     Route: 048
  3. ZOLOFT [Concomitant]
     Dosage: 50-100 MG DAILY
     Route: 048
     Dates: start: 20000407
  4. ZANAFLEX [Concomitant]
     Route: 048
     Dates: start: 20020603, end: 20060623
  5. AVINZA [Concomitant]
     Dosage: 60-120 MG DAILY
     Route: 065
     Dates: end: 20050628
  6. SOMA [Concomitant]
     Route: 065
     Dates: end: 20050503
  7. PERCOCET [Concomitant]
     Dosage: 10-650 MG DAILY
     Route: 065
     Dates: start: 20000222, end: 20061013
  8. SYNTHROID [Concomitant]
     Indication: HYPOTHYROIDISM
     Route: 065
  9. KLONOPIN [Concomitant]
     Dosage: 1-2 MG DAILY
     Route: 065
     Dates: start: 20000810
  10. LIPITOR [Concomitant]
     Dosage: 10-40 MG DAILY
     Route: 065
     Dates: end: 20051024
  11. ALLEGRA [Concomitant]
     Route: 065
  12. WELLBUTRIN [Concomitant]
     Dosage: 150-300 MG DAILY
     Route: 065
  13. PREVACID [Concomitant]
     Route: 048
  14. METFORMIN HYDROCHLORIDE [Concomitant]
     Route: 048
  15. REQUIP [Concomitant]
     Route: 065
  16. LYRICA [Concomitant]
     Dosage: 75-150 MG DAILY
     Route: 048
  17. METHADONE HCL [Concomitant]
     Indication: PAIN
     Dosage: 5-20 MG DAILY
     Route: 048
     Dates: start: 20050628
  18. PROTONIX [Concomitant]
     Route: 048
  19. TOPAMAX [Concomitant]
     Dosage: 25-100 MG DAILY
     Route: 048
  20. METHOCARBAMOL [Concomitant]
     Dosage: 400-2000 MG DAILY
     Route: 065
  21. CAMILA [Concomitant]
     Route: 065
  22. LAMICTAL [Concomitant]
     Route: 065
  23. PROMETHAZINE [Concomitant]
     Route: 048

REACTIONS (26)
  - ABDOMINAL HERNIA [None]
  - ABDOMINAL PAIN [None]
  - ARTHRALGIA [None]
  - BACK PAIN [None]
  - CARDIOMYOPATHY [None]
  - CHEST PAIN [None]
  - CONSTIPATION [None]
  - DIABETES MELLITUS [None]
  - DIARRHOEA [None]
  - DYSPNOEA EXERTIONAL [None]
  - DYSURIA [None]
  - EXOSTOSIS [None]
  - HIATUS HERNIA [None]
  - HYPERLIPIDAEMIA [None]
  - HYPOTHYROIDISM [None]
  - ILL-DEFINED DISORDER [None]
  - INSOMNIA [None]
  - INTERVERTEBRAL DISC DEGENERATION [None]
  - JOINT INJURY [None]
  - NAUSEA [None]
  - OSTEOARTHRITIS [None]
  - RADICULOPATHY [None]
  - REFLUX OESOPHAGITIS [None]
  - SACROILIITIS [None]
  - TACHYCARDIA [None]
  - TOOTH ABSCESS [None]
